FAERS Safety Report 11018695 (Version 2)
Quarter: 2015Q2

REPORT INFORMATION
  Report Type: Spontaneous
  Country: US (occurrence: US)
  Receive Date: 20150412
  Receipt Date: 20150524
  Transmission Date: 20150821
  Serious: No
  Sender: FDA-Public Use
  Company Number: US-JNJFOC-20130116867

PATIENT

DRUGS (3)
  1. DEXAMETHASONE. [Suspect]
     Active Substance: DEXAMETHASONE
     Indication: PLASMA CELL MYELOMA
     Dosage: OVER 30 MIN ON DAYS 1, 4, 8, AND 11 OF EACH CYCLE
     Route: 042
  2. POMALIDOMIDE [Suspect]
     Active Substance: POMALIDOMIDE
     Indication: PLASMA CELL MYELOMA
     Dosage: 2, 3 OR 4 MG DAILY IN 3 SUCCESSIVE COHORTS OF 3 PATIENTS EACH ON DAYS 1-21 OF EACH 28-DAY CYCLE
     Route: 048
  3. DOXORUBICIN [Suspect]
     Active Substance: DOXORUBICIN
     Indication: PLASMA CELL MYELOMA
     Dosage: OVER 30-90 MIN ON DAYS 1, 4, 8 AND 11 OF EACH CYCLE
     Route: 042

REACTIONS (4)
  - Neutropenia [Unknown]
  - Lymphopenia [Unknown]
  - Blood urea increased [Unknown]
  - Leukopenia [Unknown]
